FAERS Safety Report 4718137-6 (Version None)
Quarter: 2005Q3

REPORT INFORMATION
  Report Type: 
  Country: None (occurrence: None)
  Receive Date: 20050720
  Receipt Date: 20050523
  Transmission Date: 20060218
  Serious: Yes (Other)
  Sender: FDA-Public Use
  Company Number: PHBS2005BE07548

PATIENT
  Age: 79 Year
  Sex: Male

DRUGS (3)
  1. ZOMETA [Suspect]
     Indication: MULTIPLE MYELOMA
     Dosage: 4 MG/MONTH
     Route: 065
     Dates: start: 20021001, end: 20050201
  2. THALIDOMIDE [Concomitant]
     Dates: start: 20011201
  3. AREDIA [Suspect]
     Indication: MULTIPLE MYELOMA
     Dosage: 90 MG/MONTH
     Route: 065
     Dates: start: 20010801, end: 20020901

REACTIONS (4)
  - ASEPTIC NECROSIS BONE [None]
  - BONE DEBRIDEMENT [None]
  - PURULENT DISCHARGE [None]
  - TOOTH EXTRACTION [None]
